FAERS Safety Report 7346543-2 (Version None)
Quarter: 2011Q1

REPORT INFORMATION
  Report Type: 
  Country: None (occurrence: None)
  Receive Date: 20110311
  Receipt Date: 20110301
  Transmission Date: 20110831
  Serious: Yes (Other)
  Sender: FDA-Public Use
  Company Number: US-JNJFOC-20110301469

PATIENT
  Sex: Female
  Weight: 61.24 kg

DRUGS (19)
  1. METHOTREXATE [Concomitant]
     Indication: RHEUMATOID ARTHRITIS
     Route: 048
  2. XANAX [Concomitant]
     Indication: INSOMNIA
     Dosage: AT BED TIME
     Route: 048
  3. FLONASE [Concomitant]
     Indication: NASAL CONGESTION
     Dosage: 2 PUFFS AS NEEDED
     Route: 055
  4. ADVAIR DISKUS 100/50 [Concomitant]
     Indication: ASTHMA
     Dosage: 1 PUFF PER NIGHT
     Route: 055
  5. DURAGESIC-50 [Suspect]
     Route: 062
  6. PROTONIX [Concomitant]
     Indication: GASTRIC DISORDER
     Route: 048
  7. LYRICA [Concomitant]
     Indication: FIBROMYALGIA
     Route: 048
  8. PRISTIQ [Concomitant]
     Indication: DEPRESSION
     Route: 048
  9. ORENCIA [Concomitant]
     Indication: RHEUMATOID ARTHRITIS
     Route: 042
  10. LIDOCAINE [Concomitant]
     Indication: PAIN
     Route: 065
  11. DETROL LA [Concomitant]
     Indication: BLADDER DISORDER
     Route: 048
  12. ASPIRIN [Concomitant]
     Indication: CAROTID ARTERY OCCLUSION
     Route: 048
  13. DURAGESIC-50 [Suspect]
     Indication: BACK PAIN
     Route: 062
  14. VITAMIN D [Concomitant]
     Indication: RHEUMATOID ARTHRITIS
     Route: 048
  15. PREMARIN [Concomitant]
     Indication: INFECTION
     Route: 067
  16. MULTI-VITAMINS [Concomitant]
     Indication: RHEUMATOID ARTHRITIS
     Route: 048
  17. VICODIN [Concomitant]
     Indication: PAIN
     Route: 048
  18. VALTREX [Concomitant]
     Indication: HERPES ZOSTER
     Route: 048
  19. FOLIC ACID [Concomitant]
     Indication: RHEUMATOID ARTHRITIS
     Route: 048

REACTIONS (2)
  - SCIATICA [None]
  - BODY HEIGHT DECREASED [None]
